FAERS Safety Report 6372472-7 (Version None)
Quarter: 2009Q3

REPORT INFORMATION
  Report Type: 
  Country: None (occurrence: None)
  Receive Date: 20090924
  Receipt Date: 20080822
  Transmission Date: 20100115
  Serious: No
  Sender: FDA-Public Use
  Company Number: US-ASTRAZENECA-2008UW17179

PATIENT
  Age: 46 Year
  Weight: 117.9 kg

DRUGS (8)
  1. SEROQUEL XR [Suspect]
     Dosage: 300 MG
     Route: 048
  2. ALPRAZOLAM [Concomitant]
  3. CYMBALTA [Concomitant]
  4. NEURONTIN [Concomitant]
  5. PROVIGIL [Concomitant]
  6. TRILEPTAL [Concomitant]
  7. TEMAZEPAM [Concomitant]
  8. DEPAKOTE [Concomitant]

REACTIONS (7)
  - ASTHENIA [None]
  - DECREASED INTEREST [None]
  - GASTROOESOPHAGEAL REFLUX DISEASE [None]
  - INSOMNIA [None]
  - NAUSEA [None]
  - NERVOUSNESS [None]
  - RESTLESSNESS [None]
